FAERS Safety Report 13793786 (Version 1)
Quarter: 2017Q3

REPORT INFORMATION
  Report Type: Spontaneous
  Country: US (occurrence: US)
  Receive Date: 20170726
  Receipt Date: 20170726
  Transmission Date: 20171127
  Serious: No
  Sender: FDA-Public Use
  Company Number: PHEH2017US022838

PATIENT

DRUGS (1)
  1. AFINITOR [Suspect]
     Active Substance: EVEROLIMUS
     Indication: PRODUCT USED FOR UNKNOWN INDICATION
     Route: 065

REACTIONS (6)
  - Mouth ulceration [Unknown]
  - Oral discomfort [Unknown]
  - Pruritus [Unknown]
  - Herpes zoster [Unknown]
  - Nodule [Unknown]
  - Diarrhoea [Unknown]
